FAERS Safety Report 14192629 (Version 2)
Quarter: 2017Q4

REPORT INFORMATION
  Report Type: Spontaneous
  Country: JP (occurrence: JP)
  Receive Date: 20171116
  Receipt Date: 20171218
  Transmission Date: 20180321
  Serious: Yes (Hospitalization, Other)
  Sender: FDA-Public Use
  Company Number: JP-009507513-1710JPN000584J

PATIENT
  Age: 66 Year
  Sex: Female
  Weight: 49 kg

DRUGS (5)
  1. KEYTRUDA [Suspect]
     Active Substance: PEMBROLIZUMAB
     Indication: LUNG ADENOCARCINOMA STAGE II
     Dosage: 200 MG, Q3W
     Route: 041
     Dates: start: 20170802, end: 20170919
  2. ALDACTONE A [Concomitant]
     Active Substance: SPIRONOLACTONE
     Dosage: UNK
     Route: 065
  3. FUROSEMIDE. [Concomitant]
     Active Substance: FUROSEMIDE
     Dosage: UNK
     Route: 065
  4. RABEPRAZOLE NA [Concomitant]
     Active Substance: RABEPRAZOLE SODIUM
     Dosage: UNK
     Route: 065
  5. WARFARIN [Concomitant]
     Active Substance: WARFARIN
     Dosage: UNK
     Route: 065

REACTIONS (2)
  - Spinal compression fracture [Recovering/Resolving]
  - Hyperthyroidism [Recovering/Resolving]

NARRATIVE: CASE EVENT DATE: 20170829
